FAERS Safety Report 4314429-3 (Version None)
Quarter: 2004Q1

REPORT INFORMATION
  Report Type: 
  Country: None (occurrence: None)
  Receive Date: 20040308
  Receipt Date: 20030930
  Transmission Date: 20041129
  Serious: Yes (Hospitalization, Other)
  Sender: FDA-Public Use
  Company Number: KII-2003-0007807

PATIENT
  Age: 50 Year
  Sex: Male

DRUGS (2)
  1. OXYCONTIN [Suspect]
     Indication: DRUG USE FOR UNKNOWN INDICATION
  2. FLEXERIL [Suspect]
     Indication: DRUG USE FOR UNKNOWN INDICATION

REACTIONS (19)
  - ACIDOSIS [None]
  - BLOOD CREATININE ABNORMAL [None]
  - BLOOD MAGNESIUM DECREASED [None]
  - BLOOD PHOSPHORUS DECREASED [None]
  - BLOOD POTASSIUM INCREASED [None]
  - CHEST X-RAY ABNORMAL [None]
  - DEHYDRATION [None]
  - DEPRESSED LEVEL OF CONSCIOUSNESS [None]
  - DIAPHRAGMATIC DISORDER [None]
  - ELECTROCARDIOGRAM QT CORRECTED INTERVAL PROLONGED [None]
  - HAEMATEMESIS [None]
  - HYPOXIA [None]
  - MULTIPLE DRUG OVERDOSE [None]
  - PYREXIA [None]
  - QRS AXIS ABNORMAL [None]
  - SINUS TACHYCARDIA [None]
  - SOMNOLENCE [None]
  - VOMITING [None]
  - WHITE BLOOD CELL COUNT INCREASED [None]
